FAERS Safety Report 8799581 (Version 1)
Quarter: 2012Q4

REPORT INFORMATION
  Report Type: 
  Country: US (occurrence: US)
  Receive Date: 20120919
  Receipt Date: 20120919
  Transmission Date: 20130627
  Serious: No
  Sender: FDA-Public Use
  Company Number: US-PFIZER INC-2012230384

PATIENT
  Age: 46 Year
  Sex: Female
  Weight: 104.3 kg

DRUGS (3)
  1. SERTRALINE HCL [Suspect]
     Indication: BACK PAIN
     Dosage: 200 mg, daily
     Dates: start: 2010
  2. METFORMIN [Concomitant]
     Dosage: 500 mg, 2x/day
  3. ATENOLOL [Concomitant]
     Dosage: 25 mg, daily

REACTIONS (6)
  - Off label use [Unknown]
  - Incorrect dose administered [Unknown]
  - Malaise [Unknown]
  - Mood altered [Recovered/Resolved]
  - Personality change [Recovered/Resolved]
  - Crying [Recovered/Resolved]
